FAERS Safety Report 7629762-7 (Version None)
Quarter: 2011Q3

REPORT INFORMATION
  Report Type: 
  Country: None (occurrence: None)
  Receive Date: 20110722
  Receipt Date: 20110718
  Transmission Date: 20111222
  Serious: No
  Sender: FDA-Public Use
  Company Number: US-PFIZER INC-2011077523

PATIENT
  Sex: Male
  Weight: 70.295 kg

DRUGS (2)
  1. ADVIL PM [Suspect]
     Indication: ANALGESIC THERAPY
  2. ADVIL PM [Suspect]
     Indication: INSOMNIA
     Dosage: UNK, AS NEEDED
     Dates: start: 20100101

REACTIONS (1)
  - DRUG INEFFECTIVE [None]
